FAERS Safety Report 24457307 (Version 3)
Quarter: 2025Q3

REPORT INFORMATION
  Report Type: Report from Study
  Country: US (occurrence: US)
  Receive Date: 20241018
  Receipt Date: 20250802
  Transmission Date: 20251021
  Serious: Yes (Other)
  Sender: ALEXION PHARMACEUTICALS
  Company Number: US-AstraZeneca-CH-00711825A

PATIENT
  Sex: Female

DRUGS (1)
  1. CALQUENCE [Suspect]
     Active Substance: ACALABRUTINIB

REACTIONS (9)
  - Occupational problem environmental [Unknown]
  - Urine abnormality [Unknown]
  - Drug dependence [Unknown]
  - Clinical trial participant [Unknown]
  - Liver disorder [Unknown]
  - Hospitalisation [Unknown]
  - Tumour lysis syndrome [Unknown]
  - Cerebrovascular accident [Unknown]
  - Reading disorder [Unknown]
